FAERS Safety Report 8305263 (Version 3)
Quarter: 2013Q3

REPORT INFORMATION
  Report Type: Spontaneous
  Country: US (occurrence: US)
  Receive Date: 20111221
  Receipt Date: 20130903
  Transmission Date: 20140515
  Serious: Yes (Hospitalization)
  Sender: FDA-Public Use
  Company Number: US-GLAXOSMITHKLINE-A0935338A

PATIENT
  Age: 86 Year
  Sex: Female
  Weight: 76.8 kg

DRUGS (9)
  1. LOVAZA [Suspect]
     Indication: BLOOD TRIGLYCERIDES INCREASED
     Dosage: 2CAP TWICE PER DAY
     Route: 048
     Dates: start: 20080917
  2. VITAMIN D [Concomitant]
  3. METFORMIN [Concomitant]
  4. EFFEXOR [Concomitant]
  5. LOSARTAN [Concomitant]
  6. AMLODIPINE [Concomitant]
  7. ATENOLOL [Concomitant]
  8. DEXLANSOPRAZOLE [Concomitant]
  9. MIRALAX [Concomitant]

REACTIONS (3)
  - Hospitalisation [Not Recovered/Not Resolved]
  - Medication residue present [Unknown]
  - Hyperhidrosis [Unknown]
